FAERS Safety Report 8942173 (Version 1)
Quarter: 2012Q4

REPORT INFORMATION
  Report Type: 
  Country: IE (occurrence: IE)
  Receive Date: 20121203
  Receipt Date: 20121203
  Transmission Date: 20130627
  Serious: Yes (Other)
  Sender: FDA-Public Use
  Company Number: IE-009507513-1211IRL011955

PATIENT

DRUGS (1)
  1. FOSAVANCE [Suspect]
     Dosage: UNK
     Route: 048
     Dates: start: 2009

REACTIONS (1)
  - Anaphylactic shock [Unknown]
